FAERS Safety Report 6048382-1 (Version None)
Quarter: 2009Q1

REPORT INFORMATION
  Report Type: 
  Country: None (occurrence: None)
  Receive Date: 20090123
  Receipt Date: 20090120
  Transmission Date: 20090719
  Serious: Yes (Other)
  Sender: FDA-Public Use
  Company Number: US-BRISTOL-MYERS SQUIBB COMPANY-14476402

PATIENT
  Age: 52 Year
  Sex: Female
  Weight: 64 kg

DRUGS (3)
  1. CYTOXAN [Suspect]
     Indication: MULTIPLE MYELOMA
     Dates: start: 20080105
  2. VELCADE [Suspect]
     Indication: MULTIPLE MYELOMA
     Dosage: DAYS 1, 4, 8 AND 11
     Route: 040
     Dates: start: 20080104, end: 20081210
  3. DEXAMETHASONE [Suspect]
     Indication: MULTIPLE MYELOMA
     Dates: start: 20080105

REACTIONS (3)
  - DEAFNESS UNILATERAL [None]
  - EAR PAIN [None]
  - TOOTHACHE [None]
